FAERS Safety Report 10997560 (Version 2)
Quarter: 2015Q3

REPORT INFORMATION
  Report Type: Report from Study
  Country: US (occurrence: US)
  Receive Date: 20150408
  Receipt Date: 20150707
  Transmission Date: 20151125
  Serious: Yes (Hospitalization)
  Sender: FDA-Public Use
  Company Number: US-SA-2014SA028828

PATIENT
  Age: 59 Year
  Sex: Female

DRUGS (2)
  1. AUBAGIO [Suspect]
     Active Substance: TERIFLUNOMIDE
     Indication: MULTIPLE SCLEROSIS
     Route: 048
     Dates: start: 20140217
  2. TYLENOL [Concomitant]
     Active Substance: ACETAMINOPHEN
     Indication: NEUROPATHY PERIPHERAL

REACTIONS (12)
  - Fatigue [Not Recovered/Not Resolved]
  - Limb discomfort [Unknown]
  - Fall [Unknown]
  - Condition aggravated [Unknown]
  - Arthralgia [Unknown]
  - Urinary tract infection [Unknown]
  - Visual impairment [Unknown]
  - Diarrhoea [Unknown]
  - Abdominal discomfort [Unknown]
  - Crying [Unknown]
  - Head injury [Unknown]
  - Bronchitis [Recovering/Resolving]
